FAERS Safety Report 23701575 (Version 1)
Quarter: 2024Q2

REPORT INFORMATION
  Report Type: Report from Study
  Country: CA (occurrence: CA)
  Receive Date: 20240403
  Receipt Date: 20240403
  Transmission Date: 20240716
  Serious: Yes (Other)
  Sender: FDA-Public Use
  Company Number: CA-JAMP PHARMA CORPORATION-2023-JAM-CA-00476

PATIENT
  Age: 49 Year
  Sex: Female

DRUGS (4)
  1. SIMLANDI [Suspect]
     Active Substance: ADALIMUMAB-RYVK
     Indication: Ankylosing spondylitis
     Dosage: 40 MILLIGRAM, EVERY 2 WEEKS
     Route: 058
     Dates: start: 20230316, end: 202311
  2. COVID-19 VACCINE [Concomitant]
     Indication: Product used for unknown indication
     Dosage: UNK
     Route: 065
     Dates: start: 202311, end: 202311
  3. INFLUENZA VIRUS VACCINE [Concomitant]
     Active Substance: INFLUENZA VIRUS VACCINE
     Indication: Product used for unknown indication
     Dosage: UNK
     Route: 065
     Dates: start: 202311, end: 202311
  4. SIMLANDI [Suspect]
     Active Substance: ADALIMUMAB-RYVK
     Indication: Ankylosing spondylitis
     Dosage: 40 MILLIGRAM, EVERY 2 WEEKS
     Route: 058
     Dates: start: 20231231

REACTIONS (3)
  - Uveitis [Unknown]
  - Pruritus [Unknown]
  - Influenza [Unknown]

NARRATIVE: CASE EVENT DATE: 20230316
